FAERS Safety Report 23253427 (Version 2)
Quarter: 2024Q1

REPORT INFORMATION
  Report Type: Spontaneous
  Country: IT (occurrence: IT)
  Receive Date: 20231202
  Receipt Date: 20240206
  Transmission Date: 20240410
  Serious: Yes (Life-Threatening, Hospitalization, Other)
  Sender: FDA-Public Use
  Company Number: IT-CELLTRION INC.-2023IT022979

PATIENT

DRUGS (29)
  1. RITUXIMAB [Suspect]
     Active Substance: RITUXIMAB
     Indication: Diffuse large B-cell lymphoma
     Dosage: R-DHAP REGIMEN AS SECOND LINE THERAPY (THERAPY COMPLETED)
     Route: 065
     Dates: start: 2021, end: 2021
  2. RITUXIMAB [Suspect]
     Active Substance: RITUXIMAB
     Dosage: R-IEV REGIMEN (THERAPY COMPLETED)
  3. RITUXIMAB [Suspect]
     Active Substance: RITUXIMAB
     Dosage: R-COMP REGIMEN AS FIRST LINE THERAPY (THERAPY COMPLETED)
     Dates: start: 2021, end: 2021
  4. METHYLPREDNISOLONE [Suspect]
     Active Substance: METHYLPREDNISOLONE
     Indication: Immune effector cell-associated neurotoxicity syndrome
     Dosage: 100 MILLIGRAM, QD
     Route: 065
     Dates: start: 2022, end: 2022
  5. METHYLPREDNISOLONE [Suspect]
     Active Substance: METHYLPREDNISOLONE
     Indication: Cytokine release syndrome
     Dosage: ADMINISTERED AT EACH LUMBAR PUNCTURE. LATER, TAPER WAS INITIATED
     Dates: start: 2022
  6. ANAKINRA [Suspect]
     Active Substance: ANAKINRA
     Indication: Immune effector cell-associated neurotoxicity syndrome
     Dosage: ONCE A DAY
     Route: 065
  7. ANAKINRA [Suspect]
     Active Substance: ANAKINRA
     Indication: Cytokine release syndrome
  8. CISPLATIN [Suspect]
     Active Substance: CISPLATIN
     Indication: Diffuse large B-cell lymphoma
     Dosage: R-DHAP REGIMEN AS SECOND LINE THERAPY (THERAPY COMPLETED)
     Route: 065
     Dates: start: 2021, end: 2021
  9. VINCRISTINE [Suspect]
     Active Substance: VINCRISTINE
     Indication: Diffuse large B-cell lymphoma
     Dosage: R-COMP REGIMEN AS FIRST LINE THERAPY (THERAPY COMPLETED)
     Route: 065
     Dates: start: 2021, end: 2021
  10. EPIRUBICIN [Suspect]
     Active Substance: EPIRUBICIN
     Indication: Diffuse large B-cell lymphoma
     Dosage: R-IEV REGIMEN (THERAPY COMPLETED)
     Route: 065
     Dates: start: 2021
  11. CYTARABINE [Suspect]
     Active Substance: CYTARABINE
     Indication: Diffuse large B-cell lymphoma
     Dosage: R-DHAP REGIMEN AS SECOND LINE THERAPY  (THERAPY COMPLETED)
     Route: 065
     Dates: start: 2021, end: 2021
  12. DOXORUBICIN HYDROCHLORIDE [Suspect]
     Active Substance: DOXORUBICIN HYDROCHLORIDE
     Indication: Diffuse large B-cell lymphoma
     Dosage: R-COMP REGIMEN AS FIRST LINE THERAPY (THERAPY COMPLETED)
     Route: 065
     Dates: start: 2021, end: 2021
  13. PREDNISONE [Suspect]
     Active Substance: PREDNISONE
     Indication: Diffuse large B-cell lymphoma
     Dosage: R-COMP REGIMEN AS FIRST LINE THERAPY (THERAPY COMPLETED)
     Route: 065
     Dates: start: 2021, end: 2021
  14. CYCLOPHOSPHAMIDE [Suspect]
     Active Substance: CYCLOPHOSPHAMIDE
     Indication: Diffuse large B-cell lymphoma
     Dosage: R-COMP REGIMEN AS FIRST LINE THERAPY (THERAPY COMPLETED; LATER ADMINISTERED AS CONDITIONING CHEMOTHE
     Route: 065
     Dates: start: 2021, end: 2021
  15. ETOPOSIDE [Suspect]
     Active Substance: ETOPOSIDE
     Indication: Diffuse large B-cell lymphoma
     Dosage: R-IEV REGIMEN (THERAPY COMPLETED)
     Route: 065
     Dates: start: 2021
  16. IFOSFAMIDE [Suspect]
     Active Substance: IFOSFAMIDE
     Indication: Diffuse large B-cell lymphoma
     Dosage: R-IEV REGIMEN (THERAPY COMPLETED)
     Route: 065
     Dates: start: 2021
  17. DEXAMETHASONE [Suspect]
     Active Substance: DEXAMETHASONE
     Indication: Immune effector cell-associated neurotoxicity syndrome
     Dosage: ADMINISTERED AT EACH LUMBAR PUNCTURE. LATER, TAPER WAS INITIATED
     Route: 065
  18. DEXAMETHASONE [Suspect]
     Active Substance: DEXAMETHASONE
     Indication: Cytokine release syndrome
     Dosage: R-DHAP REGIMEN AS SECOND LINE THERAPY
     Route: 065
     Dates: start: 2021, end: 2021
  19. DEXAMETHASONE [Suspect]
     Active Substance: DEXAMETHASONE
     Indication: Diffuse large B-cell lymphoma
  20. AXICABTAGENE CILOLEUCEL [Suspect]
     Active Substance: AXICABTAGENE CILOLEUCEL
     Indication: Diffuse large B-cell lymphoma
     Dosage: 144 X 10^6 CD3+ T CELLS (80.8% CD19-CAR-T POSITIVE; 3,8:1 CD4:CD8 RATIO).
     Dates: start: 202201
  21. FLUDARABINE [Suspect]
     Active Substance: FLUDARABINE PHOSPHATE
     Indication: Diffuse large B-cell lymphoma
     Route: 065
  22. TOCILIZUMAB [Concomitant]
     Active Substance: TOCILIZUMAB
     Indication: Immune effector cell-associated neurotoxicity syndrome
     Dosage: RECEIVED 2 DOSES
     Route: 065
     Dates: start: 2022, end: 2022
  23. TOCILIZUMAB [Concomitant]
     Active Substance: TOCILIZUMAB
     Indication: Cytokine release syndrome
  24. ACYCLOVIR [Concomitant]
     Active Substance: ACYCLOVIR
     Indication: Antiviral prophylaxis
     Dosage: 0.5 PER DAY
  25. LEVOFLOXACIN [Concomitant]
     Active Substance: LEVOFLOXACIN
     Indication: Antibiotic prophylaxis
     Dosage: 750 MILLIGRAM,QD (THERAPY COMPLETED)
     Dates: start: 2022, end: 2022
  26. ANAKINRA [Concomitant]
     Active Substance: ANAKINRA
     Indication: Immune effector cell-associated neurotoxicity syndrome
     Dosage: 1000 MG, QD
     Dates: start: 2022
  27. ANAKINRA [Concomitant]
     Active Substance: ANAKINRA
     Indication: Cytokine release syndrome
  28. FLUDARABINE [Concomitant]
     Active Substance: FLUDARABINE PHOSPHATE
     Indication: Chemotherapy
     Dosage: UNK
     Dates: start: 202201, end: 2022
  29. ACYCLOVIR [Concomitant]
     Active Substance: ACYCLOVIR
     Indication: Antiviral prophylaxis
     Dosage: 400 MILLIGRAM, BID (THERAPY COMPLETED)
     Dates: start: 2022, end: 2022

REACTIONS (9)
  - Coma [Recovering/Resolving]
  - Immune effector cell-associated neurotoxicity syndrome [Recovered/Resolved]
  - Cytokine release syndrome [Recovering/Resolving]
  - Disease progression [Recovered/Resolved]
  - Bronchopulmonary aspergillosis [Recovered/Resolved]
  - Bronchopulmonary aspergillosis [Recovered/Resolved]
  - Aspergillus infection [Recovered/Resolved]
  - Drug ineffective [Unknown]
  - Product use issue [Unknown]

NARRATIVE: CASE EVENT DATE: 20210501
